FAERS Safety Report 4805635-X (Version None)
Quarter: 2005Q4

REPORT INFORMATION
  Report Type: 
  Country: None (occurrence: None)
  Receive Date: 20051018
  Receipt Date: 20051005
  Transmission Date: 20060501
  Serious: Yes (Other)
  Sender: FDA-Public Use
  Company Number: 2005138982

PATIENT
  Sex: Female

DRUGS (2)
  1. XALATAN [Suspect]
     Indication: GLAUCOMA
     Dosage: 3 MCG (1.5 MCG, DAILY INTERVAL:  EVERY DAY), OPHTHALMIC
     Route: 047
     Dates: start: 20020101
  2. SEROQUEL [Concomitant]

REACTIONS (9)
  - ASTHMA [None]
  - BLOOD CATECHOLAMINES DECREASED [None]
  - DRUG INEFFECTIVE [None]
  - INTRAOCULAR PRESSURE INCREASED [None]
  - LARYNGITIS [None]
  - MENTAL DISORDER [None]
  - PHARYNGOLARYNGEAL PAIN [None]
  - SERUM SEROTONIN DECREASED [None]
  - WRONG TECHNIQUE IN DRUG USAGE PROCESS [None]
